FAERS Safety Report 8564004-X (Version None)
Quarter: 2012Q3

REPORT INFORMATION
  Report Type: 
  Country: None (occurrence: None)
  Receive Date: 20120803
  Receipt Date: 20120801
  Transmission Date: 20120928
  Serious: Yes (Other)
  Sender: FDA-Public Use
  Company Number: PHHY2012FR066691

PATIENT
  Sex: Female

DRUGS (1)
  1. AREDIA [Suspect]

REACTIONS (8)
  - VISUAL ACUITY REDUCED [None]
  - FAECAL INCONTINENCE [None]
  - NECROSIS [None]
  - OEDEMA PERIPHERAL [None]
  - ORAL DISORDER [None]
  - HAIR DISORDER [None]
  - SKIN DISORDER [None]
  - RENAL FAILURE [None]
